FAERS Safety Report 8164245 (Version 2)
Quarter: 2013Q1

REPORT INFORMATION
  Report Type: Spontaneous
  Country: US (occurrence: US)
  Receive Date: 20110930
  Receipt Date: 20130201
  Transmission Date: 20140127
  Serious: No
  Sender: FDA-Public Use
  Company Number: US-ASTRAZENECA-2010SE53107

PATIENT
  Age: 79 Year
  Sex: Female

DRUGS (1)
  1. ARIMIDEX [Suspect]
     Dosage: GENERIC
     Route: 048

REACTIONS (8)
  - Nasopharyngitis [Unknown]
  - Bronchitis [Unknown]
  - Hallucination, visual [Unknown]
  - Middle insomnia [Unknown]
  - Feeling abnormal [Unknown]
  - Headache [Unknown]
  - Nausea [Unknown]
  - Drug dose omission [Unknown]
